FAERS Safety Report 6626893-5 (Version None)
Quarter: 2010Q1

REPORT INFORMATION
  Report Type: 
  Country: None (occurrence: None)
  Receive Date: 20100311
  Receipt Date: 20100302
  Transmission Date: 20100710
  Serious: Yes (Hospitalization)
  Sender: FDA-Public Use
  Company Number: US-ASTRAZENECA-2010SE09390

PATIENT
  Sex: Male

DRUGS (2)
  1. CRESTOR [Suspect]
     Route: 048
  2. HYPERTENSIVE MEDICINE [Concomitant]

REACTIONS (4)
  - ASTHENIA [None]
  - HYPERTENSION [None]
  - PYREXIA [None]
  - RASH [None]
